FAERS Safety Report 4777439-8 (Version None)
Quarter: 2005Q3

REPORT INFORMATION
  Report Type: 
  Country: None (occurrence: None)
  Receive Date: 20050915
  Receipt Date: 20050830
  Transmission Date: 20060218
  Serious: Yes (Death, Life-Threatening)
  Sender: FDA-Public Use
  Company Number: EM2001-0070

PATIENT
  Age: 68 Year
  Sex: Male

DRUGS (10)
  1. PROLEUKIN [Suspect]
     Indication: MALIGNANT MELANOMA
     Dosage: SEE IMAGE
     Route: 058
     Dates: start: 19980414, end: 19980508
  2. MAXAMINE (HISTAMINE DIHYDROCHLORIDE) [Suspect]
     Indication: MALIGNANT MELANOMA
     Dosage: 1 MG, BID, SUBCUTAN.
     Route: 058
     Dates: start: 19980414, end: 19980508
  3. IBUPROFEN [Concomitant]
  4. HYDROCORTISON (HYDROCORTISONE) [Concomitant]
  5. DEXTROPROPOXIFEN (DEXTROPROPOXYPHENE) [Concomitant]
  6. ACETAMINOPHEN [Concomitant]
  7. GLYBURIDE [Concomitant]
  8. OMEPRAZOLE [Concomitant]
  9. LIDOCAINE HCL INJ [Concomitant]
  10. ATTAPULGITE (ATTAPULGITE) [Concomitant]

REACTIONS (7)
  - ADRENAL INSUFFICIENCY [None]
  - BLOOD PRESSURE IMMEASURABLE [None]
  - CEREBROVASCULAR ACCIDENT [None]
  - CONVULSION [None]
  - EYE ROLLING [None]
  - PALLOR [None]
  - SEPSIS [None]
